FAERS Safety Report 17466912 (Version 1)
Quarter: 2020Q1

REPORT INFORMATION
  Report Type: Spontaneous
  Country: US (occurrence: US)
  Receive Date: 20200225
  Receipt Date: 20200225
  Transmission Date: 20200409
  Serious: Yes (Other)
  Sender: FDA-Public Use
  Company Number: None

PATIENT
  Age: 77 Year
  Sex: Male
  Weight: 73.03 kg

DRUGS (2)
  1. PROLIA [Suspect]
     Active Substance: DENOSUMAB
  2. PROLIA [Concomitant]
     Active Substance: DENOSUMAB
     Dates: start: 20190603, end: 20200206

REACTIONS (2)
  - Pain [None]
  - Post procedural complication [None]

NARRATIVE: CASE EVENT DATE: 20200206
